FAERS Safety Report 6126180-8 (Version None)
Quarter: 2009Q1

REPORT INFORMATION
  Report Type: 
  Country: None (occurrence: None)
  Receive Date: 20090320
  Receipt Date: 20090311
  Transmission Date: 20090719
  Serious: Yes (Life-Threatening, Hospitalization)
  Sender: FDA-Public Use
  Company Number: B0560134A

PATIENT
  Age: 72 Year
  Sex: Female

DRUGS (1)
  1. AUGMENTIN '125' [Suspect]
     Indication: PNEUMONIA
     Dosage: 625MG THREE TIMES PER DAY
     Route: 048
     Dates: start: 20090105, end: 20090110

REACTIONS (3)
  - DERMATITIS ALLERGIC [None]
  - RASH GENERALISED [None]
  - RASH PRURITIC [None]
